FAERS Safety Report 6551209-2 (Version None)
Quarter: 2010Q1

REPORT INFORMATION
  Report Type: 
  Country: None (occurrence: None)
  Receive Date: 20100121
  Receipt Date: 20100106
  Transmission Date: 20100710
  Serious: Yes (Hospitalization)
  Sender: FDA-Public Use
  Company Number: 004260

PATIENT
  Sex: Male

DRUGS (7)
  1. OMEPRAZOLE [Suspect]
     Dosage: (ORAL)
     Route: 048
     Dates: end: 20091218
  2. INFLUENZA VACCINE (PANDEMRIX H1N1) [Suspect]
     Indication: PROPHYLAXIS
     Dosage: (INTRAMUSCULAR)
     Route: 030
     Dates: start: 20091209, end: 20091209
  3. VENTOLIN [Suspect]
     Indication: ASTHMA
     Dates: end: 20091218
  4. SERETIDE /01434201/ (SERETIDE) (NOT SPECIFIED) [Suspect]
     Indication: ASTHMA
     Dates: end: 20091218
  5. FLIXOTIDE /00972202/ (FLIXOTIDE) (NOT SPECIFIED) [Suspect]
     Indication: ASTHMA
     Dates: end: 20091218
  6. HYDROCORTISONE [Concomitant]
  7. COLECALCIFEROL [Concomitant]

REACTIONS (6)
  - APATHY [None]
  - ASTHENIA [None]
  - ENCEPHALITIS [None]
  - HYPERAESTHESIA [None]
  - IRRITABILITY [None]
  - MYALGIA [None]
